FAERS Safety Report 8101978-5 (Version None)
Quarter: 2012Q1

REPORT INFORMATION
  Report Type: 
  Country: None (occurrence: None)
  Receive Date: 20120131
  Receipt Date: 20120118
  Transmission Date: 20120608
  Serious: Yes (Other)
  Sender: FDA-Public Use
  Company Number: JP-ELI_LILLY_AND_COMPANY-JP201112003996

PATIENT
  Age: 75 Year
  Sex: Female

DRUGS (1)
  1. FORTEO [Suspect]
     Dosage: UNK
     Route: 058
     Dates: start: 20111201, end: 20120101

REACTIONS (4)
  - INJECTION SITE ERYTHEMA [None]
  - METASTASIS [None]
  - RIB FRACTURE [None]
  - SPINAL X-RAY ABNORMAL [None]
